FAERS Safety Report 7659999-2 (Version None)
Quarter: 2011Q3

REPORT INFORMATION
  Report Type: 
  Country: None (occurrence: None)
  Receive Date: 20110805
  Receipt Date: 20110802
  Transmission Date: 20111222
  Serious: Yes (Hospitalization, Other)
  Sender: FDA-Public Use
  Company Number: IT-BRISTOL-MYERS SQUIBB COMPANY-15921182

PATIENT
  Age: 66 Year
  Sex: Male

DRUGS (12)
  1. COUMADIN [Suspect]
     Indication: AORTIC VALVE REPLACEMENT
     Dosage: COUMADIN 5MG ORAL TABS INTERRUPTED ON 13APR11
     Route: 048
     Dates: start: 20100201
  2. CALCITRIOL [Concomitant]
  3. NORVASC [Concomitant]
     Dosage: NORVASC 5MG ORAL TABS
     Route: 048
  4. SODIUM BICARBONATE [Concomitant]
  5. LEVEMIR [Concomitant]
     Indication: DIABETES MELLITUS
  6. TICLOPIDINE HCL [Suspect]
     Indication: CORONARY ARTERY BYPASS
     Dosage: TICLOPIDIN 250MG COATED ORAL TABS
     Route: 048
     Dates: start: 20100201, end: 20110413
  7. LASIX [Concomitant]
     Dosage: LASIX 500 MG ORAL TABS, 1 UNIT
     Route: 048
  8. REPAGLINIDE [Concomitant]
     Dosage: NOVONORM 2MG ORAL TABS, 2 UNITS
     Route: 048
  9. CONGESCOR [Concomitant]
     Dosage: CONGESCOR 1.25 ORAL TABS, 1 UNIT
     Route: 048
  10. ASPIRIN [Suspect]
     Indication: MYOCARDIAL ISCHAEMIA
     Dosage: CARDIOASPIRIN 100MG ORAL TABS INTERRUPTED ON 13APR11
     Route: 048
     Dates: start: 20090101
  11. MINITRAN [Concomitant]
     Dosage: MINITRAN 10MG/24H TTS, 1 UNITS
  12. RABEPRAZOLE SODIUM [Concomitant]
     Dosage: PARIET 20MG ORAL TABS, 1 UNIT
     Route: 048

REACTIONS (3)
  - FALL [None]
  - ANAEMIA [None]
  - EPISTAXIS [None]
